FAERS Safety Report 12931799 (Version 1)
Quarter: 2016Q4

REPORT INFORMATION
  Report Type: Report from Study
  Country: US (occurrence: US)
  Receive Date: 20161111
  Receipt Date: 20161111
  Transmission Date: 20170207
  Serious: Yes (Other)
  Sender: FDA-Public Use
  Company Number: US-BRISTOL-MYERS SQUIBB COMPANY-BMS-2016-095756

PATIENT
  Age: 23 Year
  Sex: Male

DRUGS (3)
  1. EMTRICITABINE [Concomitant]
     Active Substance: EMTRICITABINE
     Indication: ANTIRETROVIRAL THERAPY
     Route: 065
  2. EFAVIRENZ [Suspect]
     Active Substance: EFAVIRENZ
     Indication: ANTIRETROVIRAL THERAPY
     Route: 065
  3. TENOFOVIR DISOPROXIL FUMARATE. [Concomitant]
     Active Substance: TENOFOVIR DISOPROXIL FUMARATE
     Indication: ANTIRETROVIRAL THERAPY
     Route: 065

REACTIONS (2)
  - Viral mutation identified [Unknown]
  - Blood HIV RNA increased [Unknown]
